FAERS Safety Report 16463898 (Version 2)
Quarter: 2019Q3

REPORT INFORMATION
  Report Type: Report from Study
  Country: US (occurrence: US)
  Receive Date: 20190621
  Receipt Date: 20190724
  Transmission Date: 20191004
  Serious: Yes (Hospitalization, Other)
  Sender: FDA-Public Use
  Company Number: US-AMGEN-USACT2019095966

PATIENT
  Age: 4 Year
  Sex: Female
  Weight: 15.3 kg

DRUGS (37)
  1. HYDROCORTISONE. [Suspect]
     Active Substance: HYDROCORTISONE
     Dosage: 2 MILLIGRAM/KILOGRAM
     Route: 042
  2. LEVAQUIN [Concomitant]
     Active Substance: LEVOFLOXACIN
     Dosage: 10 MILLIGRAM/KILOGRAM, Q12H
     Route: 042
  3. VINCRISTINE [Suspect]
     Active Substance: VINCRISTINE
     Indication: B PRECURSOR TYPE ACUTE LEUKAEMIA
     Dosage: 1.5 MILLIGRAM/SQ. METER
     Route: 042
  4. PENTAMIDINE [Concomitant]
     Active Substance: PENTAMIDINE
     Dosage: 300 MILLIGRAM, QMO
     Route: 042
     Dates: start: 20190523
  5. BLINATUMOMAB [Suspect]
     Active Substance: BLINATUMOMAB
     Indication: B PRECURSOR TYPE ACUTE LEUKAEMIA
     Dosage: 15 MICROGRAM/SQ. METER, QD
     Route: 042
     Dates: start: 20190520, end: 20190607
  6. HYDROCORTISONE. [Suspect]
     Active Substance: HYDROCORTISONE
     Dosage: 2 MILLIGRAM/KILOGRAM
     Route: 042
     Dates: start: 20190531
  7. CYTARABINE. [Suspect]
     Active Substance: CYTARABINE
     Indication: B PRECURSOR TYPE ACUTE LEUKAEMIA
     Dosage: 16-30MG
     Route: 037
  8. HEPARIN LOCK FLUSH [Concomitant]
     Active Substance: HEPARIN SODIUM
     Dosage: 30 UNIT, AS NECESSARY
     Route: 042
  9. RED BLOOD CELLS [Concomitant]
     Active Substance: HUMAN RED BLOOD CELL
     Dosage: 15ML/KG, AS NECESSARY
     Dates: end: 20190531
  10. METHOTREXATE. [Suspect]
     Active Substance: METHOTREXATE
     Indication: B PRECURSOR TYPE ACUTE LEUKAEMIA
     Dosage: UNK
     Route: 065
     Dates: start: 201903, end: 201904
  11. METHOTREXATE. [Suspect]
     Active Substance: METHOTREXATE
     Dosage: 8-15MG
     Route: 037
  12. HYDROCORTISONE. [Suspect]
     Active Substance: HYDROCORTISONE
     Indication: B PRECURSOR TYPE ACUTE LEUKAEMIA
     Dosage: 8-15MG
     Route: 037
  13. HYDROCORTISONE. [Suspect]
     Active Substance: HYDROCORTISONE
     Indication: PREMEDICATION
     Dosage: 30 MILLIGRAM, AS NECESSARY
     Route: 042
  14. BACTROBAN [Concomitant]
     Active Substance: MUPIROCIN\MUPIROCIN CALCIUM
     Dosage: UNK UNK, BID
     Route: 061
  15. MIRALAX [Concomitant]
     Active Substance: POLYETHYLENE GLYCOL 3350
     Indication: CONSTIPATION
     Dosage: 8.5 GRAM, QD AS NEEDED
     Route: 048
  16. BENADRYL [Concomitant]
     Active Substance: DIPHENHYDRAMINE HYDROCHLORIDE
     Indication: NAUSEA
     Dosage: 6.25 MILLIGRAM, Q6H AS NEEDED
     Route: 048
  17. BACTROBAN [MUPIROCIN CALCIUM] [Concomitant]
     Dosage: UNK UNK, AS NECESSARY
  18. ZINC OXIDE. [Concomitant]
     Active Substance: ZINC OXIDE
     Dosage: UNK UNK, AS NECESSARY
  19. ZOFRAN [Concomitant]
     Active Substance: ONDANSETRON HYDROCHLORIDE
     Indication: VOMITING
     Dosage: UNK UNK, AS NECESSARY
  20. METHOTREXATE. [Suspect]
     Active Substance: METHOTREXATE
     Dosage: 20 MILLIGRAM/SQ. METER
     Route: 048
  21. RISPERDAL [Concomitant]
     Active Substance: RISPERIDONE
     Indication: AGITATION
     Dosage: 0.3 MILLIGRAM, BID AS NEEDED
     Route: 048
  22. BENADRYL [Concomitant]
     Active Substance: DIPHENHYDRAMINE HYDROCHLORIDE
     Indication: PREMEDICATION
  23. PROVENTIL [Concomitant]
     Active Substance: ALBUTEROL
     Indication: ANAPHYLACTIC REACTION
     Dosage: 2.5 MILLIGRAM, AS NECESSARY
  24. ATIVAN [Concomitant]
     Active Substance: LORAZEPAM
     Indication: SEIZURE
     Route: 042
  25. MYCAMINE [Concomitant]
     Active Substance: MICAFUNGIN SODIUM
     Dosage: 2 MILLIGRAM/KILOGRAM, QD
     Route: 042
  26. BENADRYL [Concomitant]
     Active Substance: DIPHENHYDRAMINE HYDROCHLORIDE
     Indication: VOMITING
     Dosage: 1 MILLIGRAM/KILOGRAM
     Route: 042
  27. VENTOLIN HFA [Concomitant]
     Active Substance: ALBUTEROL SULFATE
     Indication: ANAPHYLACTIC REACTION
     Dosage: 2 PUFF, AS NEEDED
  28. ZANTAC [Concomitant]
     Active Substance: RANITIDINE HYDROCHLORIDE
     Indication: PREMEDICATION
     Dosage: 1 MILLIGRAM/KILOGRAM
     Route: 042
  29. PLATELETS [Concomitant]
     Active Substance: HUMAN PLATELET, ALLOGENIC
     Dosage: UNK
     Dates: start: 20190606
  30. PENTAMIDINE [Concomitant]
     Active Substance: PENTAMIDINE
     Dosage: 300 MILLIGRAM, QMO
     Route: 042
  31. LASIX [Concomitant]
     Active Substance: FUROSEMIDE
     Dosage: UNK UNK, AS NECESSARY
  32. MELATONIN [Concomitant]
     Active Substance: MELATONIN
     Indication: INSOMNIA
     Dosage: 3 MILLIGRAM, QHS AS NEEDED
  33. MERCAPTOPURINE. [Suspect]
     Active Substance: MERCAPTOPURINE
     Indication: B PRECURSOR TYPE ACUTE LEUKAEMIA
     Dosage: 75 MILLIGRAM/SQ. METER
     Route: 048
  34. NACL [Concomitant]
     Active Substance: SODIUM CHLORIDE
     Dosage: 0.9%
  35. SENOKOT [Concomitant]
     Active Substance: SENNOSIDES
     Indication: CONSTIPATION
     Dosage: 4.4 MILLIGRAM, QH AS NEEDED
  36. TYLENOL [Concomitant]
     Active Substance: ACETAMINOPHEN
     Indication: PAIN
     Dosage: 160 MILLIGRAM, Q6H AS NEEDED
     Route: 048
  37. TYLENOL [Concomitant]
     Active Substance: ACETAMINOPHEN
     Indication: PYREXIA

REACTIONS (2)
  - Hyperuricaemia [Unknown]
  - Blood lactate dehydrogenase increased [Recovering/Resolving]

NARRATIVE: CASE EVENT DATE: 20190528
